FAERS Safety Report 7275748-4 (Version None)
Quarter: 2011Q1

REPORT INFORMATION
  Report Type: 
  Country: None (occurrence: None)
  Receive Date: 20110204
  Receipt Date: 20110126
  Transmission Date: 20110831
  Serious: Yes (Other)
  Sender: FDA-Public Use
  Company Number: US-MERCK-0911USA04320

PATIENT
  Age: 70 Year
  Sex: Female

DRUGS (2)
  1. FOSAMAX [Suspect]
     Indication: OSTEOPOROSIS
     Route: 048
     Dates: start: 19950101, end: 20040701
  2. FOSAMAX [Suspect]
     Indication: OSTEOARTHRITIS
     Route: 048
     Dates: start: 19950101, end: 20040701

REACTIONS (10)
  - TOOTH LOSS [None]
  - DEPRESSION [None]
  - ANXIETY [None]
  - JAW DISORDER [None]
  - ABSCESS ORAL [None]
  - ORAL PAIN [None]
  - ORAL INFECTION [None]
  - OSTEONECROSIS OF JAW [None]
  - STOMATITIS [None]
  - OSTEOMYELITIS [None]
